FAERS Safety Report 22177673 (Version 1)
Quarter: 2023Q2

REPORT INFORMATION
  Report Type: Spontaneous
  Country: US (occurrence: US)
  Receive Date: 20230405
  Receipt Date: 20230405
  Transmission Date: 20230722
  Serious: No
  Sender: FDA-Public Use
  Company Number: US-PFIZER INC-PV202300060482

PATIENT
  Age: 64 Year
  Sex: Female

DRUGS (2)
  1. INLYTA [Suspect]
     Active Substance: AXITINIB
     Dosage: 3 DF, 2X/DAY
  2. INLYTA [Suspect]
     Active Substance: AXITINIB
     Dosage: 2 DF, 2X/DAY

REACTIONS (7)
  - Weight decreased [Recovering/Resolving]
  - Muscle discomfort [Recovering/Resolving]
  - Asthenia [Recovering/Resolving]
  - Nausea [Recovering/Resolving]
  - Diarrhoea [Recovering/Resolving]
  - Dyspepsia [Recovering/Resolving]
  - Drug intolerance [Unknown]
